FAERS Safety Report 11620663 (Version 3)
Quarter: 2015Q4

REPORT INFORMATION
  Report Type: Spontaneous
  Country: US (occurrence: US)
  Receive Date: 20151012
  Receipt Date: 20151125
  Transmission Date: 20160304
  Serious: No
  Sender: FDA-Public Use
  Company Number: US-PFIZER INC-2015328449

PATIENT
  Age: 72 Year
  Sex: Female
  Weight: 66 kg

DRUGS (1)
  1. ZOLOFT [Suspect]
     Active Substance: SERTRALINE HYDROCHLORIDE
     Indication: SEASONAL AFFECTIVE DISORDER
     Dosage: UNK, 1X/DAY

REACTIONS (2)
  - Suspected counterfeit product [Unknown]
  - Dizziness [Unknown]

NARRATIVE: CASE EVENT DATE: 20141220
